FAERS Safety Report 6135745-9 (Version None)
Quarter: 2009Q1

REPORT INFORMATION
  Report Type: 
  Country: None (occurrence: None)
  Receive Date: 20090327
  Receipt Date: 20090319
  Transmission Date: 20090719
  Serious: Yes (Hospitalization, Other)
  Sender: FDA-Public Use
  Company Number: PHHY2008GB15302

PATIENT
  Sex: Male

DRUGS (5)
  1. CLOZARIL [Suspect]
     Indication: SCHIZOPHRENIA
     Dosage: 600 MG/DAY
     Route: 048
     Dates: start: 20050808, end: 20090220
  2. CLOZARIL [Suspect]
     Dosage: 400 MG DAILY
     Route: 048
  3. OMEPRAZOLE [Concomitant]
  4. GAVISCON [Concomitant]
  5. AMISULPRIDE [Concomitant]

REACTIONS (6)
  - DYSPEPSIA [None]
  - GASTRITIS [None]
  - GASTROOESOPHAGEAL REFLUX DISEASE [None]
  - SALIVARY HYPERSECRETION [None]
  - VOMITING [None]
  - WEIGHT INCREASED [None]
